FAERS Safety Report 21925479 (Version 6)
Quarter: 2025Q2

REPORT INFORMATION
  Report Type: Report from Study
  Country: US (occurrence: US)
  Receive Date: 20230130
  Receipt Date: 20250506
  Transmission Date: 20250717
  Serious: Yes (Hospitalization, Other)
  Sender: TAKEDA
  Company Number: US-TAKEDA-2023TUS008280

PATIENT
  Age: 39 Year
  Sex: Male
  Weight: 74 kg

DRUGS (5)
  1. TEDUGLUTIDE [Suspect]
     Active Substance: TEDUGLUTIDE
     Indication: Short-bowel syndrome
     Dosage: 0.36 MILLILITER, QD
  2. TEDUGLUTIDE [Suspect]
     Active Substance: TEDUGLUTIDE
     Dosage: 3.6 MILLIGRAM, QD
     Dates: start: 20221231
  3. TEDUGLUTIDE [Suspect]
     Active Substance: TEDUGLUTIDE
     Dosage: 3.65 MILLIGRAM, QD
     Dates: start: 202212
  4. TEDUGLUTIDE [Suspect]
     Active Substance: TEDUGLUTIDE
     Dosage: 0.35 MILLILITER, QD
  5. TEDUGLUTIDE [Suspect]
     Active Substance: TEDUGLUTIDE

REACTIONS (15)
  - Device related sepsis [Unknown]
  - Stoma site discomfort [Unknown]
  - Osteomyelitis [Unknown]
  - Incisional hernia [Unknown]
  - Stoma prolapse [Recovering/Resolving]
  - Vomiting [Unknown]
  - Abdominal pain [Unknown]
  - Ingrown hair [Unknown]
  - Stoma complication [Unknown]
  - Dizziness [Unknown]
  - Blood pressure increased [Unknown]
  - Spinal column injury [Recovering/Resolving]
  - Coccydynia [Unknown]
  - Nausea [Unknown]
  - Upper respiratory tract infection [Unknown]

NARRATIVE: CASE EVENT DATE: 20231214
